FAERS Safety Report 5360808-5 (Version None)
Quarter: 2007Q2

REPORT INFORMATION
  Report Type: 
  Country: None (occurrence: None)
  Receive Date: 20070618
  Receipt Date: 20070615
  Transmission Date: 20071010
  Serious: Yes (Other)
  Sender: FDA-Public Use
  Company Number: DE-BRISTOL-MYERS SQUIBB COMPANY-13816582

PATIENT

DRUGS (1)
  1. CAPOZIDE [Suspect]
     Indication: ESSENTIAL HYPERTENSION

REACTIONS (1)
  - CORNEAL OPACITY [None]
